FAERS Safety Report 4385074-9 (Version None)
Quarter: 2004Q2

REPORT INFORMATION
  Report Type: 
  Country: None (occurrence: None)
  Receive Date: 20040624
  Receipt Date: 20040624
  Transmission Date: 20050107
  Serious: Yes (Hospitalization)
  Sender: FDA-Public Use
  Company Number: None

PATIENT
  Sex: Male
  Weight: 90.3 kg

DRUGS (1)
  1. HYDROCODONE BITARTRATE AND ACETAMINOPHEN [Suspect]
     Indication: PAIN
     Dosage: 10/1000 MG Q 6H PRN
     Dates: start: 20040219, end: 20040310

REACTIONS (6)
  - HYPOXIA [None]
  - LACRIMATION INCREASED [None]
  - NAUSEA [None]
  - PRURITUS [None]
  - SOMNOLENCE [None]
  - VOMITING [None]
